FAERS Safety Report 16336495 (Version 1)
Quarter: 2019Q2

REPORT INFORMATION
  Report Type: Spontaneous
  Country: US (occurrence: US)
  Receive Date: 20190521
  Receipt Date: 20190521
  Transmission Date: 20190711
  Serious: No
  Sender: FDA-Public Use
  Company Number: US-BAYER-2019-098435

PATIENT
  Age: 88 Year
  Sex: Female
  Weight: 70 kg

DRUGS (3)
  1. MIRALAX [Suspect]
     Active Substance: POLYETHYLENE GLYCOL 3350
     Indication: GASTROINTESTINAL DISORDER
     Dosage: 1 DF, QD
     Route: 048
  2. BENEFIBER (GUAR GUM) [Suspect]
     Active Substance: GUAR GUM
     Indication: GASTROINTESTINAL DISORDER
     Route: 048
  3. MULTIVITAMINS;MINERALS [Concomitant]
     Dosage: UNK

REACTIONS (2)
  - Constipation [Recovered/Resolved]
  - Diarrhoea [Not Recovered/Not Resolved]

NARRATIVE: CASE EVENT DATE: 201905
